FAERS Safety Report 4402911-X (Version None)
Quarter: 2004Q3

REPORT INFORMATION
  Report Type: 
  Country: None (occurrence: None)
  Receive Date: 20040721
  Receipt Date: 20040624
  Transmission Date: 20050211
  Serious: Yes (Hospitalization, Other)
  Sender: FDA-Public Use
  Company Number: GB-BRISTOL-MYERS SQUIBB COMPANY-12624938

PATIENT
  Age: 65 Year
  Sex: Female

DRUGS (5)
  1. CETUXIMAB [Suspect]
     Indication: COLORECTAL CANCER METASTATIC
     Dosage: MOST RECENT TX ON 17-JUN-04. PT HAD REC'D 4 INFUSIONS SO FAR. DOSE DELAYED/THEN REDUCED
     Route: 042
     Dates: start: 20040527
  2. IRINOTECAN [Suspect]
     Indication: COLORECTAL CANCER METASTATIC
     Dosage: MOST RECENT INFUSION:10-JUN-04. PT HAD REC'D 2 TX PRIOR TO EVENT. DOSE DELAYED/THEN D/C'D
     Route: 042
     Dates: start: 20040527, end: 20040624
  3. METFORMIN HCL [Concomitant]
  4. PERINDOPRIL [Concomitant]
  5. BENDROFLUAZIDE [Concomitant]

REACTIONS (9)
  - CONFUSIONAL STATE [None]
  - HALLUCINATION [None]
  - MOUTH ULCERATION [None]
  - PAIN [None]
  - PHARYNGEAL ERYTHEMA [None]
  - PHARYNGITIS [None]
  - PYREXIA [None]
  - RASH [None]
  - STOMATITIS [None]
